FAERS Safety Report 15222222 (Version 1)
Quarter: 2018Q3

REPORT INFORMATION
  Report Type: Spontaneous
  Country: FR (occurrence: FR)
  Receive Date: 20180731
  Receipt Date: 20180731
  Transmission Date: 20181010
  Serious: Yes (Hospitalization, Other)
  Sender: FDA-Public Use
  Company Number: PHHY2018FR061100

PATIENT
  Age: 15 Year
  Sex: Male
  Weight: 73 kg

DRUGS (1)
  1. TEGRETOL [Suspect]
     Active Substance: CARBAMAZEPINE
     Indication: MENTAL DISORDER
     Dosage: 200 MG, UNK
     Route: 048

REACTIONS (7)
  - Agitation [Recovering/Resolving]
  - C-reactive protein increased [Recovering/Resolving]
  - Hepatocellular injury [Recovering/Resolving]
  - Lymphopenia [Recovering/Resolving]
  - Blood creatine phosphokinase increased [Recovering/Resolving]
  - Leukopenia [Recovering/Resolving]
  - Hyperthermia [Recovered/Resolved]

NARRATIVE: CASE EVENT DATE: 20180506
